FAERS Safety Report 9379560 (Version 2)
Quarter: 2013Q3

REPORT INFORMATION
  Report Type: Spontaneous
  Country: US (occurrence: US)
  Receive Date: 20130702
  Receipt Date: 20130802
  Transmission Date: 20140515
  Serious: Yes (Disabling)
  Sender: FDA-Public Use
  Company Number: US-JNJFOC-20130617863

PATIENT
  Age: 33 Year
  Sex: Female

DRUGS (1)
  1. XARELTO [Suspect]
     Indication: THROMBOSIS PROPHYLAXIS
     Dosage: FOR 5 MONTHS
     Route: 048
     Dates: start: 20130128, end: 20130617

REACTIONS (2)
  - Deep vein thrombosis [Recovering/Resolving]
  - Treatment noncompliance [Unknown]
